FAERS Safety Report 8591986-2 (Version None)
Quarter: 2012Q3

REPORT INFORMATION
  Report Type: 
  Country: None (occurrence: None)
  Receive Date: 20120814
  Receipt Date: 20120806
  Transmission Date: 20120928
  Serious: Yes (Other)
  Sender: FDA-Public Use
  Company Number: US-ASTRAZENECA-2012SE55330

PATIENT
  Age: 19 Year
  Sex: Female
  Weight: 68.5 kg

DRUGS (2)
  1. SEROQUEL [Suspect]
     Indication: BIPOLAR DISORDER
     Route: 048
     Dates: start: 20030101
  2. SEROQUEL [Suspect]
     Indication: ANXIETY
     Route: 048
     Dates: start: 20030101

REACTIONS (4)
  - INTENTIONAL DRUG MISUSE [None]
  - SUICIDAL IDEATION [None]
  - CRYING [None]
  - DRUG WITHDRAWAL SYNDROME [None]
